FAERS Safety Report 5423722-2 (Version None)
Quarter: 2007Q3

REPORT INFORMATION
  Report Type: 
  Country: None (occurrence: None)
  Receive Date: 20070727
  Receipt Date: 20060119
  Transmission Date: 20080115
  Serious: Yes (Hospitalization)
  Sender: FDA-Public Use
  Company Number: THYM-10856

PATIENT
  Age: 56 Year
  Sex: Male
  Weight: 86.637 kg

DRUGS (9)
  1. THYMOGLOBULIN [Suspect]
     Indication: MULTIPLE MYELOMA
     Dosage: 0.5 MG/KG IV
     Route: 042
     Dates: start: 20050628, end: 20050630
  2. THYMOGLOBULIN [Suspect]
  3. CORTICOSTEROIDS [Concomitant]
  4. CYCYLOSPORINE [Concomitant]
  5. MEDROL [Concomitant]
  6. VORICONAZOLE [Concomitant]
  7. VALCYTE [Concomitant]
  8. ACTICAL [Concomitant]
  9. NITAZOXANIDE [Concomitant]

REACTIONS (7)
  - ACUTE GRAFT VERSUS HOST DISEASE IN SKIN [None]
  - EPSTEIN-BARR VIRUS TEST POSITIVE [None]
  - GASTROENTERITIS CRYPTOSPORIDIAL [None]
  - LYMPHOMA [None]
  - LYMPHOPROLIFERATIVE DISORDER [None]
  - POST PROCEDURAL COMPLICATION [None]
  - RETROPERITONEAL LYMPHADENOPATHY [None]
